FAERS Safety Report 14925481 (Version 2)
Quarter: 2018Q3

REPORT INFORMATION
  Report Type: Spontaneous
  Country: US (occurrence: US)
  Receive Date: 20180522
  Receipt Date: 20180807
  Transmission Date: 20181010
  Serious: Yes (Other)
  Sender: FDA-Public Use
  Company Number: US-009507513-1805USA008641

PATIENT
  Age: 61 Year
  Sex: Female

DRUGS (2)
  1. KEYTRUDA [Suspect]
     Active Substance: PEMBROLIZUMAB
     Indication: LARYNGEAL SQUAMOUS CELL CARCINOMA
     Dosage: 4 CYCLES
  2. KEYTRUDA [Suspect]
     Active Substance: PEMBROLIZUMAB
     Indication: MALIGNANT NEOPLASM PROGRESSION

REACTIONS (4)
  - Pleuritic pain [Recovered/Resolved]
  - Malignant neoplasm progression [Recovered/Resolved]
  - Therapeutic response increased [Unknown]
  - Drug resistance [Unknown]
